FAERS Safety Report 19897586 (Version 1)
Quarter: 2021Q3

REPORT INFORMATION
  Report Type: Spontaneous
  Country: US (occurrence: US)
  Receive Date: 20210929
  Receipt Date: 20210929
  Transmission Date: 20211014
  Serious: Yes (Hospitalization, Other)
  Sender: FDA-Public Use
  Company Number: US-ZHEJIANG JUTAI PHARMACEUTICALS-000009

PATIENT
  Age: 39 Year
  Sex: Male

DRUGS (1)
  1. BUPROPION. [Suspect]
     Active Substance: BUPROPION
     Indication: DEPRESSION
     Dosage: INJECTED 16 TABLETS OF BUPROPION
     Route: 042

REACTIONS (4)
  - Swelling [Unknown]
  - Product use issue [Unknown]
  - Thrombophlebitis [Unknown]
  - Myalgia [Unknown]
